FAERS Safety Report 5954164-9 (Version None)
Quarter: 2008Q4

REPORT INFORMATION
  Report Type: 
  Country: None (occurrence: None)
  Receive Date: 20081113
  Receipt Date: 20081113
  Transmission Date: 20090506
  Serious: Yes (Other)
  Sender: FDA-Public Use
  Company Number: None

PATIENT
  Sex: Female
  Weight: 91.6266 kg

DRUGS (1)
  1. WELLBUTRIN XL [Suspect]
     Indication: BIPOLAR I DISORDER
     Dosage: 300MG PO
     Route: 048
     Dates: start: 20080926

REACTIONS (1)
  - PHARYNGEAL OEDEMA [None]
